FAERS Safety Report 5357439-X (Version None)
Quarter: 2007Q2

REPORT INFORMATION
  Report Type: 
  Country: None (occurrence: None)
  Receive Date: 20070530
  Receipt Date: 20061110
  Transmission Date: 20071010
  Serious: Yes (Other)
  Sender: FDA-Public Use
  Company Number: US200607002185

PATIENT
  Sex: Male
  Weight: 95.2 kg

DRUGS (6)
  1. ZYPREXA [Suspect]
     Indication: BIPOLAR DISORDER
     Dates: start: 20031101, end: 20040801
  2. ABILIFY [Concomitant]
  3. SEROQUEL [Concomitant]
  4. RISPERDAL /SWE/ (RISPERIDONE) [Concomitant]
  5. HALDOL SOLUTAB [Concomitant]
  6. LITHIUM CARBONATE [Concomitant]

REACTIONS (3)
  - GYNAECOMASTIA [None]
  - THYROID DISORDER [None]
  - WEIGHT INCREASED [None]
